FAERS Safety Report 13507225 (Version 1)
Quarter: 2017Q2

REPORT INFORMATION
  Report Type: Spontaneous
  Country: US (occurrence: US)
  Receive Date: 20170503
  Receipt Date: 20170503
  Transmission Date: 20170830
  Serious: No
  Sender: FDA-Public Use
  Company Number: US-TEVA-739206ACC

PATIENT
  Sex: Female

DRUGS (2)
  1. MICONAZOLE. [Suspect]
     Active Substance: MICONAZOLE
     Indication: BURNING SENSATION
     Dosage: NIGHTLY
     Route: 067
     Dates: start: 20170204
  2. MICONAZOLE. [Suspect]
     Active Substance: MICONAZOLE
     Indication: PRURITUS

REACTIONS (4)
  - Discomfort [Not Recovered/Not Resolved]
  - Product physical consistency issue [Unknown]
  - Application site pruritus [Not Recovered/Not Resolved]
  - Application site pain [Not Recovered/Not Resolved]

NARRATIVE: CASE EVENT DATE: 20170204
